FAERS Safety Report 8511692-X (Version None)
Quarter: 2012Q3

REPORT INFORMATION
  Report Type: 
  Country: None (occurrence: None)
  Receive Date: 20120710
  Receipt Date: 20120710
  Transmission Date: 20120928
  Serious: Yes (Other)
  Sender: FDA-Public Use
  Company Number: None

PATIENT
  Age: 61 Year
  Sex: Male
  Weight: 94.3482 kg

DRUGS (1)
  1. DEXAMETHASONE TAB [Suspect]

REACTIONS (26)
  - DYSPNOEA [None]
  - INSOMNIA [None]
  - FEELING COLD [None]
  - COLD SWEAT [None]
  - GASTROINTESTINAL DISORDER [None]
  - ABDOMINAL PAIN [None]
  - LARYNGITIS [None]
  - PRURITUS [None]
  - DYSSTASIA [None]
  - ABNORMAL DREAMS [None]
  - GASTROOESOPHAGEAL REFLUX DISEASE [None]
  - MOOD SWINGS [None]
  - DEPRESSION [None]
  - UNEVALUABLE EVENT [None]
  - VERTIGO [None]
  - HYPERHIDROSIS [None]
  - URINARY RETENTION [None]
  - MUSCULAR WEAKNESS [None]
  - HYPOPHAGIA [None]
  - PALPITATIONS [None]
  - ANGER [None]
  - VISION BLURRED [None]
  - HICCUPS [None]
  - PRESYNCOPE [None]
  - CONSTIPATION [None]
  - PSYCHOTIC DISORDER [None]
